FAERS Safety Report 21864486 (Version 6)
Quarter: 2024Q1

REPORT INFORMATION
  Report Type: Report from Study
  Country: US (occurrence: US)
  Receive Date: 20230116
  Receipt Date: 20240104
  Transmission Date: 20240410
  Serious: Yes (Other)
  Sender: FDA-Public Use
  Company Number: US-ABBVIE-4235295

PATIENT
  Sex: Female

DRUGS (2)
  1. SKYRIZI [Suspect]
     Active Substance: RISANKIZUMAB-RZAA
     Indication: Psoriasis
     Route: 058
     Dates: start: 20220617
  2. SKYRIZI [Suspect]
     Active Substance: RISANKIZUMAB-RZAA
     Indication: Psoriatic arthropathy
     Route: 058
     Dates: start: 20230310

REACTIONS (8)
  - Nephrolithiasis [Recovered/Resolved]
  - Psoriasis [Unknown]
  - Blister [Not Recovered/Not Resolved]
  - Abdominal discomfort [Recovering/Resolving]
  - Acne [Not Recovered/Not Resolved]
  - Blister [Recovered/Resolved]
  - Therapeutic response shortened [Unknown]
  - Adverse food reaction [Unknown]

NARRATIVE: CASE EVENT DATE: 20230101
